FAERS Safety Report 10102060 (Version 1)
Quarter: 2014Q2

REPORT INFORMATION
  Report Type: Spontaneous
  Country: US (occurrence: None)
  Receive Date: 20140423
  Receipt Date: 20140423
  Transmission Date: 20141212
  Serious: Yes (Other)
  Sender: FDA-Public Use
  Company Number: None

PATIENT
  Age: 63 Year
  Sex: Male

DRUGS (13)
  1. OLYSIO [Suspect]
     Route: 048
     Dates: start: 20140325
  2. PEGASYS [Concomitant]
  3. LANTUS [Concomitant]
  4. BENAZEPRIL [Concomitant]
  5. AMLODIPINE [Concomitant]
  6. PROCRIT [Concomitant]
  7. RIBAVIRIN [Concomitant]
  8. PERCOCET [Concomitant]
  9. LEVOTHYROXIN POW SODIUM [Concomitant]
  10. JANUVIA [Concomitant]
  11. PRIOGRAF [Concomitant]
  12. FISH OIL [Concomitant]
  13. TAMSULOSIN [Concomitant]

REACTIONS (1)
  - Skin discolouration [None]
